FAERS Safety Report 24189954 (Version 1)
Quarter: 2024Q3

REPORT INFORMATION
  Report Type: Spontaneous
  Country: US (occurrence: US)
  Receive Date: 20240808
  Receipt Date: 20240808
  Transmission Date: 20241016
  Serious: Yes (Other)
  Sender: JOHNSON AND JOHNSON
  Company Number: US-JNJFOC-20240816439

PATIENT
  Sex: Female
  Weight: 82.4 kg

DRUGS (6)
  1. DARZALEX [Suspect]
     Active Substance: DARATUMUMAB
     Indication: Plasma cell myeloma
     Dosage: 1 CYCLE
     Route: 065
     Dates: start: 202109
  2. DARZALEX [Suspect]
     Active Substance: DARATUMUMAB
     Route: 065
     Dates: start: 202111, end: 202402
  3. CARFILZOMIB [Suspect]
     Active Substance: CARFILZOMIB
     Indication: Plasma cell myeloma
     Dosage: 1 CYCLE
     Dates: start: 202109
  4. DEXAMETHASONE [Suspect]
     Active Substance: DEXAMETHASONE
     Indication: Plasma cell myeloma
     Route: 065
     Dates: start: 202109
  5. DEXAMETHASONE [Suspect]
     Active Substance: DEXAMETHASONE
     Dates: start: 202101, end: 202402
  6. POMALIDOMIDE [Suspect]
     Active Substance: POMALIDOMIDE
     Indication: Plasma cell myeloma
     Route: 065
     Dates: start: 202101, end: 202402

REACTIONS (2)
  - Plasma cell myeloma [Unknown]
  - Drug intolerance [Unknown]
